FAERS Safety Report 10067707 (Version 1)
Quarter: 2014Q2

REPORT INFORMATION
  Report Type: Spontaneous
  Country: US (occurrence: None)
  Receive Date: 20140408
  Receipt Date: 20140408
  Transmission Date: 20141212
  Serious: Yes (Other)
  Sender: FDA-Public Use
  Company Number: None

PATIENT
  Sex: Male
  Weight: 95 kg

DRUGS (3)
  1. ZANAMIVIR [Suspect]
     Dates: start: 20140213, end: 20140225
  2. HEPARIN [Concomitant]
  3. ATRYN [Concomitant]

REACTIONS (5)
  - Pleural effusion [None]
  - Leukocytosis [None]
  - Haemothorax [None]
  - Contusion [None]
  - Catheter site injury [None]
